FAERS Safety Report 14491143 (Version 1)
Quarter: 2018Q1

REPORT INFORMATION
  Report Type: Spontaneous
  Country: US (occurrence: US)
  Receive Date: 20180206
  Receipt Date: 20180206
  Transmission Date: 20180509
  Serious: No
  Sender: FDA-Public Use
  Company Number: US-009507513-1801USA006229

PATIENT

DRUGS (4)
  1. BCG VACCINE USP [Suspect]
     Active Substance: BCG VACCINE
     Dosage: UNK
     Route: 043
     Dates: start: 20171221
  2. BCG VACCINE USP [Suspect]
     Active Substance: BCG VACCINE
     Dosage: UNK
     Route: 043
     Dates: start: 20171228
  3. BCG VACCINE USP [Suspect]
     Active Substance: BCG VACCINE
     Dosage: UNK
     Route: 043
     Dates: start: 20180104
  4. TICE BCG [Suspect]
     Active Substance: BACILLUS CALMETTE-GUERIN SUBSTRAIN TICE LIVE ANTIGEN

REACTIONS (4)
  - Wrong drug administered [Unknown]
  - Drug dose omission [Unknown]
  - No adverse event [Unknown]
  - Incorrect route of drug administration [Unknown]

NARRATIVE: CASE EVENT DATE: 20171221
